FAERS Safety Report 9492102 (Version 1)
Quarter: 2013Q3

REPORT INFORMATION
  Report Type: Spontaneous
  Country: US (occurrence: US)
  Receive Date: 20130830
  Receipt Date: 20130830
  Transmission Date: 20140515
  Serious: Yes (Death)
  Sender: FDA-Public Use
  Company Number: US-JNJFOC-20130815423

PATIENT
  Sex: 0

DRUGS (5)
  1. ABCIXIMAB [Suspect]
     Indication: PERCUTANEOUS CORONARY INTERVENTION
     Route: 022
  2. BIVALIRUDIN [Suspect]
     Indication: ANTICOAGULANT THERAPY
     Route: 065
  3. CLOPIDOGREL [Concomitant]
     Route: 065
  4. PRASUGREL [Concomitant]
     Route: 065
  5. ASPIRIN [Concomitant]
     Route: 065

REACTIONS (2)
  - Death [Fatal]
  - Incorrect route of drug administration [Unknown]
